FAERS Safety Report 5446483-X (Version None)
Quarter: 2007Q3

REPORT INFORMATION
  Report Type: 
  Country: None (occurrence: None)
  Receive Date: 20070907
  Receipt Date: 20070903
  Transmission Date: 20080115
  Serious: Yes (Hospitalization, Disabling)
  Sender: FDA-Public Use
  Company Number: FR-BRISTOL-MYERS SQUIBB COMPANY-13898556

PATIENT
  Age: 46 Year
  Sex: Male
  Weight: 75 kg

DRUGS (10)
  1. REYATAZ [Suspect]
     Indication: HIV INFECTION
     Route: 048
     Dates: start: 20050501, end: 20070716
  2. NORVIR [Suspect]
     Indication: HIV INFECTION
     Dates: start: 20050501
  3. VIREAD [Suspect]
     Indication: HIV INFECTION
     Dates: start: 20050501
  4. EMTRIVA [Suspect]
     Indication: HIV INFECTION
     Dates: start: 20050501
  5. HEXAQUINE [Suspect]
     Indication: MUSCLE SPASMS
     Dates: end: 20070823
  6. ASPEGIC 325 [Concomitant]
  7. LIORESAL [Concomitant]
     Dates: start: 20050401
  8. INSULIN MIXTARD [Concomitant]
  9. MAGNE-B6 [Concomitant]
  10. ZELITREX [Concomitant]

REACTIONS (3)
  - ANTINUCLEAR ANTIBODY POSITIVE [None]
  - PHOTOSENSITIVITY REACTION [None]
  - SKIN DEPIGMENTATION [None]
